FAERS Safety Report 7445792-2 (Version None)
Quarter: 2011Q2

REPORT INFORMATION
  Report Type: 
  Country: None (occurrence: None)
  Receive Date: 20110429
  Receipt Date: 20090211
  Transmission Date: 20111010
  Serious: Yes (Other)
  Sender: FDA-Public Use
  Company Number: DE-GENENTECH-317660

PATIENT
  Age: 84 Year

DRUGS (1)
  1. LUCENTIS [Suspect]
     Indication: MACULAR DEGENERATION
     Dosage: UNK
     Route: 031
     Dates: start: 20081101

REACTIONS (7)
  - OCULAR HYPERAEMIA [None]
  - CORNEAL SCAR [None]
  - EYE HAEMORRHAGE [None]
  - VISUAL ACUITY REDUCED [None]
  - INGUINAL HERNIA [None]
  - EYELID PAIN [None]
  - VISION BLURRED [None]
